FAERS Safety Report 12987165 (Version 2)
Quarter: 2017Q1

REPORT INFORMATION
  Report Type: Spontaneous
  Country: DE (occurrence: DE)
  Receive Date: 20161130
  Receipt Date: 20170120
  Transmission Date: 20170428
  Serious: Yes (Hospitalization, Disabling, Other)
  Sender: FDA-Public Use
  Company Number: DE-JNJFOC-20161128873

PATIENT
  Sex: Female
  Weight: 89 kg

DRUGS (1)
  1. XARELTO [Suspect]
     Active Substance: RIVAROXABAN
     Indication: ATRIAL FIBRILLATION
     Route: 048
     Dates: start: 20161115

REACTIONS (4)
  - Feeling abnormal [Unknown]
  - Cerebellar infarction [Recovering/Resolving]
  - Malaise [Unknown]
  - Activities of daily living impaired [Unknown]
